FAERS Safety Report 17663115 (Version 3)
Quarter: 2022Q2

REPORT INFORMATION
  Report Type: Spontaneous
  Country: CA (occurrence: CA)
  Receive Date: 20200413
  Receipt Date: 20220505
  Transmission Date: 20220721
  Serious: Yes (Other)
  Sender: FDA-Public Use
  Company Number: CA-BAUSCH-BL-2020-010296

PATIENT
  Age: 52 Year
  Sex: Female

DRUGS (12)
  1. METRONIDAZOLE [Suspect]
     Active Substance: METRONIDAZOLE
     Indication: Product used for unknown indication
     Route: 065
  2. CIPROFLOXACIN [Suspect]
     Active Substance: CIPROFLOXACIN
     Indication: Product used for unknown indication
     Route: 065
  3. SANDOSTATIN [Suspect]
     Active Substance: OCTREOTIDE ACETATE
     Indication: Neuroendocrine carcinoma metastatic
     Route: 058
  4. SANDOSTATIN [Suspect]
     Active Substance: OCTREOTIDE ACETATE
     Route: 058
  5. SANDOSTATIN [Suspect]
     Active Substance: OCTREOTIDE ACETATE
     Route: 030
  6. SANDOSTATIN [Suspect]
     Active Substance: OCTREOTIDE ACETATE
     Route: 030
  7. PRIMOVIST [Suspect]
     Active Substance: GADOXETATE DISODIUM
     Indication: Product used for unknown indication
     Route: 065
  8. OCTREOTIDE [Suspect]
     Active Substance: OCTREOTIDE
     Indication: Neuroendocrine carcinoma metastatic
     Route: 030
     Dates: start: 20111219
  9. OCTREOTIDE [Suspect]
     Active Substance: OCTREOTIDE
     Route: 058
     Dates: start: 20160129
  10. OCTREOTIDE [Suspect]
     Active Substance: OCTREOTIDE
     Route: 058
  11. OCTREOTIDE [Suspect]
     Active Substance: OCTREOTIDE
     Route: 030
  12. COLACE [Concomitant]
     Active Substance: DOCUSATE SODIUM
     Indication: Product used for unknown indication

REACTIONS (19)
  - Blood pressure increased [Recovered/Resolved]
  - Bone pain [Recovered/Resolved]
  - Contusion [Recovered/Resolved]
  - Cough [Recovered/Resolved]
  - Epistaxis [Recovered/Resolved]
  - Haemorrhage [Recovered/Resolved]
  - Heart rate decreased [Recovered/Resolved]
  - Frustration tolerance decreased [Recovered/Resolved]
  - Hypotension [Recovered/Resolved]
  - Limb discomfort [Recovered/Resolved]
  - Nasal congestion [Recovered/Resolved]
  - Nasopharyngitis [Recovered/Resolved]
  - Rubber sensitivity [Recovered/Resolved]
  - Drug hypersensitivity [Recovered/Resolved]
  - Abdominal pain [Recovered/Resolved]
  - Fatigue [Recovered/Resolved]
  - Abdominal distension [Recovered/Resolved]
  - Rash papular [Recovered/Resolved]
  - Inappropriate schedule of product administration [Unknown]

NARRATIVE: CASE EVENT DATE: 20160128
